FAERS Safety Report 9603310 (Version 1)
Quarter: 2013Q4

REPORT INFORMATION
  Report Type: Spontaneous
  Country: AU (occurrence: AU)
  Receive Date: 20131007
  Receipt Date: 20131007
  Transmission Date: 20140711
  Serious: Yes (Hospitalization)
  Sender: FDA-Public Use
  Company Number: AU-B.I. PHARMACEUTICALS,INC./RIDGEFIELD-2013-BI-30994AU

PATIENT
  Age: 81 Year
  Sex: Male

DRUGS (4)
  1. MOBIC [Suspect]
     Indication: ARTHRITIS
     Dosage: 15 MG
     Dates: end: 20130922
  2. LIPITOR [Concomitant]
  3. NEXIUM [Concomitant]
  4. GLUCOSAMINE [Concomitant]

REACTIONS (5)
  - Fall [Unknown]
  - Head injury [Unknown]
  - Road traffic accident [Unknown]
  - Subdural haemorrhage [Unknown]
  - Dyspepsia [Unknown]
